FAERS Safety Report 5239808-1 (Version None)
Quarter: 2007Q1

REPORT INFORMATION
  Report Type: 
  Country: None (occurrence: None)
  Receive Date: 20070216
  Receipt Date: 20070214
  Transmission Date: 20070707
  Serious: Yes (Other)
  Sender: FDA-Public Use
  Company Number: GBWYE856525JUL05

PATIENT
  Age: 27 Year
  Sex: Male

DRUGS (6)
  1. IBUPROFEN [Interacting]
     Dosage: UNKNOWN
  2. METHYLENEDIOXYAMPHETAMINE [Concomitant]
     Dosage: UNKNOWN
  3. ETHANOL [Interacting]
     Dosage: UNKNOWN
  4. COCAINE [Concomitant]
     Dosage: UNKNOWN
  5. PAROXETINE HCL [Suspect]
     Dosage: 20-50MG FREQUENCY UNKNOWN
     Dates: start: 19990901, end: 20021201
  6. CODEINE [Suspect]
     Dosage: UNKNOWN

REACTIONS (6)
  - AGGRESSION [None]
  - DRUG INTERACTION [None]
  - INTENTIONAL DRUG MISUSE [None]
  - OVERDOSE [None]
  - SEXUAL DYSFUNCTION [None]
  - SOCIAL PHOBIA [None]
